FAERS Safety Report 21703744 (Version 2)
Quarter: 2022Q4

REPORT INFORMATION
  Report Type: Spontaneous
  Country: JP (occurrence: JP)
  Receive Date: 20221209
  Receipt Date: 20221220
  Transmission Date: 20230113
  Serious: Yes (Hospitalization, Other)
  Sender: FDA-Public Use
  Company Number: JP-TEVA-2022-JP-2832894

PATIENT
  Age: 51 Year
  Sex: Male
  Weight: 53 kg

DRUGS (5)
  1. FILGRASTIM [Suspect]
     Active Substance: FILGRASTIM
     Indication: Stem cell transplant
     Dosage: 375 MICROGRAM IN THE MORNING, 300 MICROGRAM IN THE EVENING
     Route: 058
     Dates: start: 20220929, end: 20221002
  2. FILGRASTIM [Suspect]
     Active Substance: FILGRASTIM
     Dosage: 375 MICROGRAM DAILY; 375 MICROGRAM IN THE MORNING,
     Route: 058
     Dates: start: 20221003, end: 20221003
  3. FILGRASTIM [Suspect]
     Active Substance: FILGRASTIM
     Indication: Peripheral blood stem cell apheresis
     Dosage: 375 MICROGRAM IN THE MORNING, 300 MICROGRAM IN THE EVENING
     Route: 058
     Dates: start: 20220929, end: 20221002
  4. FILGRASTIM [Suspect]
     Active Substance: FILGRASTIM
     Dosage: 375 MICROGRAM IN THE MORNING,
     Route: 058
     Dates: start: 20221003, end: 20221003
  5. CALCIUM GLUCONATE [Concomitant]
     Active Substance: CALCIUM GLUCONATE
     Indication: Product used for unknown indication
     Route: 065
     Dates: start: 20221003, end: 20221003

REACTIONS (1)
  - Diabetes mellitus [Recovering/Resolving]

NARRATIVE: CASE EVENT DATE: 20221121
